FAERS Safety Report 10972601 (Version 2)
Quarter: 2015Q2

REPORT INFORMATION
  Report Type: Spontaneous
  Country: US (occurrence: US)
  Receive Date: 20150331
  Receipt Date: 20150525
  Transmission Date: 20150821
  Serious: Yes (Hospitalization)
  Sender: FDA-Public Use
  Company Number: US-JNJFOC-20121209059

PATIENT
  Age: 54 Year
  Sex: Male

DRUGS (3)
  1. RISPERDAL CONSTA [Suspect]
     Active Substance: RISPERIDONE
     Indication: SCHIZOPHRENIA
     Route: 030
  2. VALPROIC ACID. [Concomitant]
     Active Substance: VALPROIC ACID
     Route: 048
  3. RISPERDAL CONSTA [Suspect]
     Active Substance: RISPERIDONE
     Indication: SCHIZOPHRENIA
     Route: 030
     Dates: end: 20121016

REACTIONS (2)
  - Treatment noncompliance [Unknown]
  - Schizophrenia [Recovered/Resolved]

NARRATIVE: CASE EVENT DATE: 2012
